FAERS Safety Report 5933298-9 (Version None)
Quarter: 2008Q4

REPORT INFORMATION
  Report Type: 
  Country: None (occurrence: None)
  Receive Date: 20081028
  Receipt Date: 20081022
  Transmission Date: 20090506
  Serious: No
  Sender: FDA-Public Use
  Company Number: US-B.I. PHARMACEUTICALS,INC./RIDGEFIELD-2008-BP-16233BP

PATIENT
  Age: 62 Year
  Sex: Female

DRUGS (9)
  1. SPIRIVA [Suspect]
     Indication: CHRONIC OBSTRUCTIVE PULMONARY DISEASE
     Dosage: 18MCG
     Route: 055
     Dates: start: 20080301
  2. SYMBICORT [Suspect]
     Indication: CHRONIC OBSTRUCTIVE PULMONARY DISEASE
     Dates: start: 20080801
  3. ADVAIR HFA [Suspect]
     Indication: CHRONIC OBSTRUCTIVE PULMONARY DISEASE
     Dates: start: 20080301, end: 20080801
  4. TOPROL-XL [Concomitant]
     Indication: HEART RATE IRREGULAR
  5. VENTOLIN [Concomitant]
     Indication: CHRONIC OBSTRUCTIVE PULMONARY DISEASE
  6. SYNTHROID [Concomitant]
     Indication: THYROID DISORDER
     Dates: start: 20050101
  7. ACTONEL [Concomitant]
  8. ZOLOFT [Concomitant]
     Indication: DEPRESSION
  9. XANAX [Concomitant]
     Indication: ANXIETY

REACTIONS (4)
  - ARTHRALGIA [None]
  - DYSPHONIA [None]
  - HYPOAESTHESIA [None]
  - MYALGIA [None]
